FAERS Safety Report 17546542 (Version 1)
Quarter: 2020Q1

REPORT INFORMATION
  Report Type: Spontaneous
  Country: JP (occurrence: JP)
  Receive Date: 20200316
  Receipt Date: 20200316
  Transmission Date: 20200409
  Serious: Yes (Other)
  Sender: FDA-Public Use
  Company Number: JP-PFIZER INC-2020065564

PATIENT
  Age: 90 Year
  Sex: Male
  Weight: 41 kg

DRUGS (6)
  1. TRAMAL [Suspect]
     Active Substance: TRAMADOL
     Indication: PAIN
     Dosage: 25 MG, 3X/DAY
     Route: 048
     Dates: start: 20191211, end: 20200107
  2. CLOPIDOGREL [Concomitant]
     Active Substance: CLOPIDOGREL BISULFATE
     Dosage: 75 MG, 1X/DAY, AFTER BREAKFAST
  3. LANSOPRAZOLE. [Concomitant]
     Active Substance: LANSOPRAZOLE
     Dosage: 15 MG, 1X/DAY, AFER BREAKFAST
  4. ENALAPRIL [Concomitant]
     Active Substance: ENALAPRIL
     Dosage: 5 MG, 1X/DAY, AFTER BREAKFAST
  5. AMLODIPINE [Concomitant]
     Active Substance: AMLODIPINE BESYLATE
     Dosage: 5 MG, 1X/DAY, AFTER BREAKFAST
  6. CELECOX [Suspect]
     Active Substance: CELECOXIB
     Indication: PAIN
     Dosage: 100 MG, 2X/DAY, (AFTER BREAKFAST AND DINNER)
     Route: 048
     Dates: start: 20200107, end: 20200120

REACTIONS (6)
  - Hepatic enzyme increased [Recovering/Resolving]
  - Liver disorder [Recovering/Resolving]
  - Communication disorder [Recovered/Resolved]
  - Cholelithiasis [Unknown]
  - Somnolence [Recovering/Resolving]
  - Hepatobiliary disease [Unknown]

NARRATIVE: CASE EVENT DATE: 20191220
